FAERS Safety Report 5630116-3 (Version None)
Quarter: 2008Q1

REPORT INFORMATION
  Report Type: 
  Country: None (occurrence: None)
  Receive Date: 20080218
  Receipt Date: 20080212
  Transmission Date: 20080703
  Serious: Yes (Death, Life-Threatening, Hospitalization)
  Sender: FDA-Public Use
  Company Number: PHHO2006DE15455

PATIENT
  Age: 69 Year
  Sex: Male
  Weight: 76 kg

DRUGS (4)
  1. AMN107 [Suspect]
     Indication: BLAST CRISIS IN MYELOGENOUS LEUKAEMIA
     Dosage: 800 MG, QD
     Route: 048
     Dates: start: 20060817, end: 20060902
  2. RIFA [Concomitant]
     Indication: TUBERCULOSIS
  3. MYAMBUTOL [Concomitant]
     Indication: TUBERCULOSIS
  4. PYRAZINAMIDE [Concomitant]
     Indication: TUBERCULOSIS

REACTIONS (8)
  - DRUG INEFFECTIVE [None]
  - HEPATIC ENZYME INCREASED [None]
  - KLEBSIELLA SEPSIS [None]
  - MALIGNANT NEOPLASM PROGRESSION [None]
  - NEUTROPENIA [None]
  - PNEUMONIA KLEBSIELLA [None]
  - PULMONARY OEDEMA [None]
  - PULMONARY TUBERCULOSIS [None]
